FAERS Safety Report 17356070 (Version 1)
Quarter: 2020Q1

REPORT INFORMATION
  Report Type: Spontaneous
  Country: US (occurrence: US)
  Receive Date: 20200131
  Receipt Date: 20200131
  Transmission Date: 20200409
  Serious: Yes (Hospitalization, Other)
  Sender: FDA-Public Use
  Company Number: US-GLAXOSMITHKLINE-B0477588A

PATIENT

DRUGS (3)
  1. ZANAMIVIR [Suspect]
     Active Substance: ZANAMIVIR
     Indication: INFLUENZA
     Route: 065
  2. AZITHROMYCIN ANHYDROUS. [Suspect]
     Active Substance: AZITHROMYCIN ANHYDROUS
     Indication: INFLUENZA
     Route: 065
  3. RIMANTADINE [Suspect]
     Active Substance: RIMANTADINE HYDROCHLORIDE
     Indication: INFLUENZA
     Route: 065

REACTIONS (14)
  - Rash papular [Unknown]
  - Eyelid oedema [Unknown]
  - Erythema of eyelid [Unknown]
  - Blister [Unknown]
  - Dermatitis bullous [Recovered/Resolved]
  - Linear IgA disease [Recovered/Resolved]
  - Dysphagia [Unknown]
  - Dermatitis bullous [Unknown]
  - Erythema [Unknown]
  - Oral mucosa erosion [Unknown]
  - Respiratory disorder [Unknown]
  - Genital erosion [Unknown]
  - Mouth swelling [Unknown]
  - Odynophagia [Unknown]
